FAERS Safety Report 4523814-6 (Version None)
Quarter: 2004Q4

REPORT INFORMATION
  Report Type: 
  Country: None (occurrence: None)
  Receive Date: 20041101
  Receipt Date: 20040406
  Transmission Date: 20050328
  Serious: Yes (Hospitalization)
  Sender: FDA-Public Use
  Company Number: HQWYE405009APR04

PATIENT
  Age: 47 Year
  Sex: Female
  Weight: 78.54 kg

DRUGS (5)
  1. PREMARIN [Suspect]
     Indication: OESTROGEN REPLACEMENT THERAPY
     Dosage: 0.625 MG/DAILY, ORAL
     Route: 048
     Dates: start: 19840101, end: 20020101
  2. ENDOCET (OXYCODONE HYDROCHLORIDE/PARACETAMOL) [Concomitant]
  3. LIPITOR [Concomitant]
  4. FLUOXETINE [Concomitant]
  5. RANITIDINE [Concomitant]

REACTIONS (1)
  - PANCREATITIS [None]
